FAERS Safety Report 9337758 (Version 2)
Quarter: 2013Q2

REPORT INFORMATION
  Report Type: Report from Study
  Country: JP (occurrence: JP)
  Receive Date: 20130607
  Receipt Date: 20130627
  Transmission Date: 20140414
  Serious: Yes (Hospitalization)
  Sender: FDA-Public Use
  Company Number: JP-B.I. PHARMACEUTICALS,INC./RIDGEFIELD-2013-BI-15713NB

PATIENT
  Age: 90 Year
  Sex: Female

DRUGS (1)
  1. MICAMLO COMBINATION [Suspect]
     Indication: HYPERTENSION
     Dosage: 1 ANZ
     Route: 048
     Dates: start: 20110603, end: 20120720

REACTIONS (5)
  - Pneumonia aspiration [Recovered/Resolved]
  - Dehydration [Recovered/Resolved]
  - Decreased appetite [Unknown]
  - Dysphagia [Unknown]
  - Dementia [Unknown]
